FAERS Safety Report 8494522 (Version 2)
Quarter: 2013Q2

REPORT INFORMATION
  Report Type: Spontaneous
  Country: DE (occurrence: DE)
  Receive Date: 20120404
  Receipt Date: 20130514
  Transmission Date: 20140414
  Serious: Yes (Death, Other)
  Sender: FDA-Public Use
  Company Number: DE-ELI_LILLY_AND_COMPANY-DE201203006981

PATIENT
  Sex: Female

DRUGS (2)
  1. ZYPADHERA [Suspect]
     Indication: SCHIZOPHRENIA
     Dosage: 300 MG, EVERY 2 WEEKS
     Dates: start: 2010
  2. AKINETON                           /00079501/ [Concomitant]
     Indication: MOVEMENT DISORDER
     Dosage: 2 MG, UNKNOWN

REACTIONS (1)
  - Convulsion [Fatal]
